FAERS Safety Report 9457676 (Version 1)
Quarter: 2013Q3

REPORT INFORMATION
  Report Type: Spontaneous
  Country: US (occurrence: US)
  Receive Date: 20130814
  Receipt Date: 20130814
  Transmission Date: 20140515
  Serious: Yes (Hospitalization)
  Sender: FDA-Public Use
  Company Number: US-BAYER-2013-095807

PATIENT
  Age: 53 Year
  Sex: Female
  Weight: 68.03 kg

DRUGS (5)
  1. YAZ [Suspect]
  2. DIFLUCAN [Concomitant]
  3. DICLOFENAC [Concomitant]
  4. FLONASE [Concomitant]
  5. ZYRTEC-D [Concomitant]

REACTIONS (2)
  - Phlebitis superficial [None]
  - Deep vein thrombosis [None]
